FAERS Safety Report 4656160-0 (Version None)
Quarter: 2005Q2

REPORT INFORMATION
  Report Type: 
  Country: None (occurrence: None)
  Receive Date: 20050509
  Receipt Date: 20050428
  Transmission Date: 20051028
  Serious: Yes (Other)
  Sender: FDA-Public Use
  Company Number: JP-ROCHE-403206

PATIENT
  Age: 38 Year
  Sex: Female
  Weight: 50 kg

DRUGS (8)
  1. HORIZON [Suspect]
     Indication: ANAESTHESIA
     Dosage: FIRST ANAESTHESIA.
     Route: 048
  2. HORIZON [Suspect]
     Dosage: SECOND ANAESTHESIA.
     Route: 048
  3. RANITIDINE HYDROCHLORIDE [Concomitant]
     Indication: ANAESTHESIA
     Dosage: USED DURING BOTH SURGERIES.
     Route: 048
  4. ATROPINE SULFATE [Concomitant]
     Indication: ANAESTHESIA
     Dosage: USED DURING BOTH SURGERIES.
     Route: 048
  5. DIET AID NOS [Concomitant]
     Indication: DIABETES MELLITUS
  6. FENTANYL CITRATE [Concomitant]
     Indication: ANAESTHESIA
     Dosage: USED DURING BOTH SURGERIES.
  7. PROPOFOL [Concomitant]
     Indication: ANAESTHESIA
     Dosage: USED DURING BOTH SURGERIES.
  8. LIDOCAINE W/ EPINEPHRINE [Concomitant]
     Indication: ANAESTHESIA
     Route: 048

REACTIONS (2)
  - BLOOD CREATINE PHOSPHOKINASE INCREASED [None]
  - RESPIRATORY DEPRESSION [None]
